FAERS Safety Report 16892425 (Version 1)
Quarter: 2019Q4

REPORT INFORMATION
  Report Type: Spontaneous
  Country: US (occurrence: US)
  Receive Date: 20191007
  Receipt Date: 20191007
  Transmission Date: 20200122
  Serious: Yes (Hospitalization)
  Sender: FDA-Public Use
  Company Number: US-AMNEAL PHARMACEUTICALS-2019-AMRX-02100

PATIENT
  Age: 58 Year
  Sex: Female

DRUGS (4)
  1. ALBUTEROL SULFATE. [Suspect]
     Active Substance: ALBUTEROL SULFATE
     Indication: ORGANISING PNEUMONIA
     Dosage: UNK, EVERY 2HR AS NEEDED
  2. ALBUTEROL SULFATE. [Suspect]
     Active Substance: ALBUTEROL SULFATE
     Indication: ASTHMA
  3. ALBUTEROL;IPRATROPIUM [Suspect]
     Active Substance: ALBUTEROL\IPRATROPIUM
     Indication: ORGANISING PNEUMONIA
     Dosage: UNK, EVERY 8HR
  4. ALBUTEROL;IPRATROPIUM [Suspect]
     Active Substance: ALBUTEROL\IPRATROPIUM
     Indication: ASTHMA

REACTIONS (1)
  - Lactic acidosis [Recovered/Resolved]
